FAERS Safety Report 16939977 (Version 2)
Quarter: 2019Q4

REPORT INFORMATION
  Report Type: Report from Study
  Country: CA (occurrence: CA)
  Receive Date: 20191021
  Receipt Date: 20191226
  Transmission Date: 20200122
  Serious: Yes (Other)
  Sender: FDA-Public Use
  Company Number: CA-AMGEN-CANNI2019174025

PATIENT
  Sex: Female

DRUGS (1)
  1. AIMOVIG [Suspect]
     Active Substance: ERENUMAB-AOOE
     Indication: MIGRAINE
     Dosage: 70 MILLIGRAM, QMO
     Route: 058
     Dates: start: 20190808

REACTIONS (10)
  - Panic attack [Unknown]
  - Abdominal distension [Recovered/Resolved]
  - Defaecation urgency [Recovered/Resolved]
  - Nervousness [Unknown]
  - Depression [Unknown]
  - Suicidal ideation [Unknown]
  - Abdominal pain upper [Recovered/Resolved]
  - Arthralgia [Recovered/Resolved]
  - Bowel movement irregularity [Recovered/Resolved]
  - Anxiety [Unknown]
